FAERS Safety Report 24171722 (Version 4)
Quarter: 2025Q1

REPORT INFORMATION
  Report Type: Report from Study
  Country: US (occurrence: US)
  Receive Date: 20240805
  Receipt Date: 20250203
  Transmission Date: 20250409
  Serious: Yes (Other)
  Sender: ABBVIE
  Company Number: US-ABBVIE-5863941

PATIENT
  Age: 69 Year
  Sex: Female
  Weight: 64 kg

DRUGS (5)
  1. HUMIRA [Suspect]
     Active Substance: ADALIMUMAB
     Indication: Rheumatoid arthritis
     Dosage: CITRATE FREE
     Route: 058
     Dates: start: 20240704, end: 20241110
  2. LISINOPRIL [Concomitant]
     Active Substance: LISINOPRIL
     Indication: Blood pressure abnormal
     Dosage: BEFORE NOON
     Route: 048
     Dates: start: 20230406
  3. VITAMIN B [Concomitant]
     Active Substance: VITAMIN B
     Indication: Vitamin B complex deficiency
     Dosage: DOSE: 1000 UG/ML
     Route: 030
     Dates: start: 20231201
  4. ALLOPURINOL [Concomitant]
     Active Substance: ALLOPURINOL
     Indication: Gout
     Route: 048
     Dates: start: 20231108
  5. VITAMIN D3 [Concomitant]
     Active Substance: CHOLECALCIFEROL
     Indication: Product used for unknown indication
     Dosage: INCREASE DOSAGE IN 2024
     Route: 048
     Dates: start: 20240614

REACTIONS (8)
  - Bone fragmentation [Recovered/Resolved]
  - Spinal pain [Recovered/Resolved]
  - Rash papular [Recovered/Resolved]
  - Pruritus [Recovered/Resolved]
  - Arthritis [Not Recovered/Not Resolved]
  - Pruritus [Unknown]
  - Skin ulcer [Unknown]
  - Drug eruption [Unknown]

NARRATIVE: CASE EVENT DATE: 20240101
